FAERS Safety Report 9398765 (Version 1)
Quarter: 2013Q3

REPORT INFORMATION
  Report Type: Spontaneous
  Country: US (occurrence: US)
  Receive Date: 20130712
  Receipt Date: 20130712
  Transmission Date: 20140515
  Serious: No
  Sender: FDA-Public Use
  Company Number: US-009507513-1307USA005993

PATIENT
  Sex: Male

DRUGS (2)
  1. LOTRIMIN ULTRA [Suspect]
     Indication: TINEA INFECTION
     Dosage: UNK, UNKNOWN
     Route: 061
  2. LOTRIMIN ULTRA [Suspect]
     Indication: MEDICAL OBSERVATION

REACTIONS (4)
  - Pain in extremity [Not Recovered/Not Resolved]
  - Skin exfoliation [Unknown]
  - Pain [Unknown]
  - Condition aggravated [Unknown]
